FAERS Safety Report 15158947 (Version 4)
Quarter: 2022Q1

REPORT INFORMATION
  Report Type: Spontaneous
  Country: NL (occurrence: NL)
  Receive Date: 20180718
  Receipt Date: 20220307
  Transmission Date: 20220424
  Serious: Yes (Other)
  Sender: FDA-Public Use
  Company Number: NL-SYNTHON BV-NL01PV14.37937

PATIENT
  Age: 34 Year
  Sex: Male

DRUGS (4)
  1. IMATINIB [Suspect]
     Active Substance: IMATINIB
     Indication: Chronic myeloid leukaemia
     Dosage: 400 MILLIGRAM, QD
     Route: 065
  2. CYTARABINE [Suspect]
     Active Substance: CYTARABINE
     Indication: Acute myeloid leukaemia
     Dosage: UNK
  3. DAUNORUBICIN [Suspect]
     Active Substance: DAUNORUBICIN
     Indication: Acute myeloid leukaemia
     Dosage: UNK
  4. AMSACRINE [Suspect]
     Active Substance: AMSACRINE
     Indication: Acute myeloid leukaemia
     Dosage: UNK
     Route: 065

REACTIONS (4)
  - Acute myeloid leukaemia recurrent [Recovering/Resolving]
  - Cytogenetic analysis abnormal [Recovering/Resolving]
  - Malignant neoplasm progression [Unknown]
  - Acute myeloid leukaemia [Unknown]

NARRATIVE: CASE EVENT DATE: 20131101
